FAERS Safety Report 22001930 (Version 2)
Quarter: 2023Q2

REPORT INFORMATION
  Report Type: Report from Study
  Country: BE (occurrence: BE)
  Receive Date: 20230216
  Receipt Date: 20230416
  Transmission Date: 20230721
  Serious: Yes (Hospitalization)
  Sender: FDA-Public Use
  Company Number: BE-ABBVIE-4306350

PATIENT
  Age: 52 Year
  Sex: Female
  Weight: 52 kg

DRUGS (12)
  1. UPADACITINIB [Suspect]
     Active Substance: UPADACITINIB
     Indication: Axial spondyloarthritis
     Route: 048
     Dates: start: 20220103
  2. METHOTREXATE [Concomitant]
     Active Substance: METHOTREXATE
     Indication: Crohn^s disease
     Dosage: TIME INTERVAL: 0.16666667 WEEKS
     Route: 030
     Dates: start: 20030516
  3. PERMAX [Concomitant]
     Active Substance: PERGOLIDE
     Indication: Restless legs syndrome
     Route: 048
     Dates: start: 20030516
  4. FOLIC ACID [Concomitant]
     Active Substance: FOLIC ACID
     Indication: Folate deficiency
     Route: 048
     Dates: start: 20100612
  5. PANTOPRAZOLE [Concomitant]
     Active Substance: PANTOPRAZOLE
     Indication: Gastric pH
     Route: 048
     Dates: start: 20170315
  6. ASPIRIN [Concomitant]
     Active Substance: ASPIRIN
     Indication: Thrombosis prophylaxis
     Route: 048
     Dates: start: 20201201
  7. BISOPROLOL [Concomitant]
     Active Substance: BISOPROLOL
     Indication: Cardiovascular event prophylaxis
     Route: 048
     Dates: start: 20201001
  8. PRAMIPEXOLE [Concomitant]
     Active Substance: PRAMIPEXOLE
     Indication: Restless legs syndrome
     Route: 048
     Dates: start: 20170315
  9. SIMVASTATIN [Concomitant]
     Active Substance: SIMVASTATIN
     Indication: Hyperlipidaemia
     Route: 048
     Dates: start: 20210210
  10. MEDROL [Concomitant]
     Active Substance: METHYLPREDNISOLONE
     Indication: Axial spondyloarthritis
     Route: 048
     Dates: start: 20181031
  11. ZALDIAR [Concomitant]
     Active Substance: ACETAMINOPHEN\TRAMADOL HYDROCHLORIDE
     Indication: Axial spondyloarthritis
     Dosage: DOSE 37.5 MG
     Route: 048
     Dates: start: 20210806
  12. TRANXENE [Concomitant]
     Active Substance: CLORAZEPATE DIPOTASSIUM
     Indication: Insomnia
     Dosage: FREQUENCY-EVERY EVENING
     Route: 048
     Dates: start: 20220201

REACTIONS (1)
  - Urethral stenosis [Recovered/Resolved]

NARRATIVE: CASE EVENT DATE: 20230117
